FAERS Safety Report 12409175 (Version 1)
Quarter: 2016Q2

REPORT INFORMATION
  Report Type: Spontaneous
  Country: IT (occurrence: IT)
  Receive Date: 20160526
  Receipt Date: 20160526
  Transmission Date: 20160815
  Serious: Yes (Other)
  Sender: FDA-Public Use
  Company Number: IT-WATSON-2016-10953

PATIENT
  Age: 8 Year
  Sex: Male

DRUGS (21)
  1. METHYLPREDNISOLONE ACETATE (WATSON LABORATORIES) [Suspect]
     Active Substance: METHYLPREDNISOLONE ACETATE
     Indication: POST TRANSPLANT LYMPHOPROLIFERATIVE DISORDER
     Dosage: UNK, BLOCK AA
     Route: 037
  2. DEXAMETHASONE (UNKNOWN) [Suspect]
     Active Substance: DEXAMETHASONE
     Dosage: 10 MG/M2 PER DAY X 5,BLOCK BB
     Route: 065
  3. METHOTREXATE (METHOTREXATE SODIUM) [Suspect]
     Active Substance: METHOTREXATE SODIUM
     Dosage: UNK,BLOCK AA
     Route: 037
  4. ETOPOSIDE (UNKNOWN) [Concomitant]
     Active Substance: ETOPOSIDE
     Indication: POST TRANSPLANT LYMPHOPROLIFERATIVE DISORDER
     Dosage: VP-16: FROM 80 TO 100 MG/M2 PER DAY X 2, BLOCK AA
     Route: 065
  5. CYTARABINE (UNKNOWN) [Suspect]
     Active Substance: CYTARABINE
     Indication: POST TRANSPLANT LYMPHOPROLIFERATIVE DISORDER
     Dosage: UNK, BLOCK AA
     Route: 037
  6. RITUXIMAB [Suspect]
     Active Substance: RITUXIMAB
     Indication: POST TRANSPLANT LYMPHOPROLIFERATIVE DISORDER
     Dosage: 375 MG/M2, UNKNOWN
     Route: 065
  7. METHYLPREDNISOLONE ACETATE (WATSON LABORATORIES) [Suspect]
     Active Substance: METHYLPREDNISOLONE ACETATE
     Dosage: UNK, BLOCK BB
     Route: 037
  8. METHOTREXATE (METHOTREXATE SODIUM) [Suspect]
     Active Substance: METHOTREXATE SODIUM
     Dosage: HDMTX; FROM 1.5 TO 3 G/M2,BLOCK BB
     Route: 065
  9. VINCRISTINE (UNKNOWN) [Suspect]
     Active Substance: VINCRISTINE
     Indication: POST TRANSPLANT LYMPHOPROLIFERATIVE DISORDER
     Dosage: 1.5 MG/M2, UNKNOWN, BLOCK AA
     Route: 065
  10. DAUNOMYCIN                         /00128201/ [Suspect]
     Active Substance: DAUNORUBICIN
     Indication: POST TRANSPLANT LYMPHOPROLIFERATIVE DISORDER
     Dosage: FROM 20 TO 25 MG/M2 PER DAY X 2, BLOCK BB
     Route: 065
  11. IFOSFAMIDE. [Suspect]
     Active Substance: IFOSFAMIDE
     Indication: POST TRANSPLANT LYMPHOPROLIFERATIVE DISORDER
     Dosage: FROM 600 TO 800 MG/M2 PER DAY X 5,BLOCK AA
     Route: 065
  12. METHOTREXATE (METHOTREXATE SODIUM) [Suspect]
     Active Substance: METHOTREXATE SODIUM
     Indication: POST TRANSPLANT LYMPHOPROLIFERATIVE DISORDER
     Dosage: HDMTX: FROM 1.5 TO 3 G/M2, BLOCK AA
     Route: 065
  13. METHOTREXATE (METHOTREXATE SODIUM) [Suspect]
     Active Substance: METHOTREXATE SODIUM
     Dosage: UNK, BLOCK BB
     Route: 037
  14. CYTARABINE (UNKNOWN) [Suspect]
     Active Substance: CYTARABINE
     Dosage: FROM 120 TO 150 MG/M2 Q 12 HOURS X 4, BLOCK AA
     Route: 065
  15. DOXORUBICIN (UNKNOWN) [Suspect]
     Active Substance: DOXORUBICIN
     Indication: POST TRANSPLANT LYMPHOPROLIFERATIVE DISORDER
     Dosage: 30 MG/M2, UNKNOWN, BLOCK AA
     Route: 065
  16. FLUDARABINE [Suspect]
     Active Substance: FLUDARABINE PHOSPHATE
     Indication: POST TRANSPLANT LYMPHOPROLIFERATIVE DISORDER
     Dosage: 30 MG/M2 PER DAY X 3
     Route: 065
  17. CYTARABINE (UNKNOWN) [Suspect]
     Active Substance: CYTARABINE
     Dosage: UNK, BLOCK BB
     Route: 037
  18. CYCLOPHOSPHAMIDE. [Suspect]
     Active Substance: CYCLOPHOSPHAMIDE
     Dosage: FROM 160 TO 200 MG/M2 PER DAY X 5, BLOCK BB
     Route: 065
  19. DEXAMETHASONE (UNKNOWN) [Suspect]
     Active Substance: DEXAMETHASONE
     Indication: POST TRANSPLANT LYMPHOPROLIFERATIVE DISORDER
     Dosage: 10 MG/M2 PER DAY X 5, BLOCK AA
     Route: 065
  20. VINCRISTINE (UNKNOWN) [Suspect]
     Active Substance: VINCRISTINE
     Dosage: 1.5 MG/M2, UNKNOWN, BLOCK BB
     Route: 065
  21. CYCLOPHOSPHAMIDE. [Suspect]
     Active Substance: CYCLOPHOSPHAMIDE
     Indication: POST TRANSPLANT LYMPHOPROLIFERATIVE DISORDER
     Dosage: 750 MG/M2, UNKNOWN, BLOCK AA
     Route: 065

REACTIONS (1)
  - Pneumonia [Unknown]
